FAERS Safety Report 6581352-3 (Version None)
Quarter: 2010Q1

REPORT INFORMATION
  Report Type: 
  Country: None (occurrence: None)
  Receive Date: 20100203
  Receipt Date: 20100122
  Transmission Date: 20100710
  Serious: Yes (Other)
  Sender: FDA-Public Use
  Company Number: 1000011579

PATIENT

DRUGS (1)
  1. ESCITALOPRAM [Suspect]
     Dates: start: 20090401

REACTIONS (2)
  - MEMORY IMPAIRMENT [None]
  - TREMOR [None]
